FAERS Safety Report 11635065 (Version 1)
Quarter: 2015Q4

REPORT INFORMATION
  Report Type: Spontaneous
  Country: US (occurrence: US)
  Receive Date: 20151015
  Receipt Date: 20151015
  Transmission Date: 20160304
  Serious: No
  Sender: FDA-Public Use
  Company Number: US-SA-2015SA138983

PATIENT
  Age: 6 Day
  Sex: Female

DRUGS (3)
  1. LUMIZYME [Suspect]
     Active Substance: ALGLUCOSIDASE ALFA
     Indication: GLYCOGEN STORAGE DISEASE TYPE II
     Route: 041
     Dates: start: 20150902
  2. RITUXIMAB [Concomitant]
     Active Substance: RITUXIMAB
     Dates: start: 20150901, end: 20150901
  3. METHOTREXATE [Concomitant]
     Active Substance: METHOTREXATE
     Dates: start: 20150902

REACTIONS (3)
  - Vomiting [Recovering/Resolving]
  - Flatulence [Recovering/Resolving]
  - Irritable bowel syndrome [Recovering/Resolving]

NARRATIVE: CASE EVENT DATE: 20150906
